FAERS Safety Report 5388668-7 (Version None)
Quarter: 2007Q3

REPORT INFORMATION
  Report Type: 
  Country: None (occurrence: None)
  Receive Date: 20070712
  Receipt Date: 20070629
  Transmission Date: 20080115
  Serious: Yes (Disabling)
  Sender: FDA-Public Use
  Company Number: 100#08#2007-02497

PATIENT
  Age: 40 Year
  Sex: Male

DRUGS (6)
  1. ETHAMBUTOL HYDROCHLORIDE [Suspect]
     Indication: MYCOBACTERIUM AVIUM COMPLEX INFECTION
     Dosage: 1.2 G (DAILY)
  2. CLARITHROMYCIN [Concomitant]
  3. RIFABUTIN [Concomitant]
  4. SULFAMETHOXAZOLE AND TRIMETHOPRIM [Concomitant]
  5. FLUCONAZOLE [Concomitant]
  6. HIV ANTIVIRALS [Concomitant]

REACTIONS (19)
  - ACID FAST BACILLI INFECTION [None]
  - ACTIVITIES OF DAILY LIVING IMPAIRED [None]
  - ACUTE PSYCHOSIS [None]
  - AGITATION [None]
  - ALANINE AMINOTRANSFERASE INCREASED [None]
  - ANAEMIA [None]
  - BLOOD CULTURE POSITIVE [None]
  - CULTURE STOOL POSITIVE [None]
  - DELUSION OF GRANDEUR [None]
  - DISTRACTIBILITY [None]
  - DYSKINESIA [None]
  - GAMMA-GLUTAMYLTRANSFERASE INCREASED [None]
  - IMPULSIVE BEHAVIOUR [None]
  - INSOMNIA [None]
  - LIVER FUNCTION TEST ABNORMAL [None]
  - MEMORY IMPAIRMENT [None]
  - MYCOBACTERIUM AVIUM COMPLEX INFECTION [None]
  - OBSESSIVE-COMPULSIVE DISORDER [None]
  - SOMNOLENCE [None]
